FAERS Safety Report 14964602 (Version 1)
Quarter: 2018Q2

REPORT INFORMATION
  Report Type: Spontaneous
  Country: FR (occurrence: FR)
  Receive Date: 20180601
  Receipt Date: 20180601
  Transmission Date: 20180711
  Serious: Yes (Other)
  Sender: FDA-Public Use
  Company Number: FR-JNJFOC-20180540581

PATIENT
  Sex: Male

DRUGS (1)
  1. IMBRUVICA [Suspect]
     Active Substance: IBRUTINIB
     Indication: CHRONIC LYMPHOCYTIC LEUKAEMIA
     Route: 048
     Dates: start: 20151110

REACTIONS (3)
  - Oedema genital [Not Recovered/Not Resolved]
  - Genital pain [Not Recovered/Not Resolved]
  - Genital erythema [Not Recovered/Not Resolved]

NARRATIVE: CASE EVENT DATE: 201609
